FAERS Safety Report 14453518 (Version 5)
Quarter: 2018Q1

REPORT INFORMATION
  Report Type: Spontaneous
  Country: JP (occurrence: JP)
  Receive Date: 20180129
  Receipt Date: 20180316
  Transmission Date: 20180509
  Serious: Yes (Other)
  Sender: FDA-Public Use
  Company Number: JP-PFIZER INC-2018036324

PATIENT
  Age: 85 Year
  Sex: Male
  Weight: 54 kg

DRUGS (1)
  1. ESTRAMUSTINE PHOSPHATE [Suspect]
     Active Substance: ESTRAMUSTINE PHOSPHATE
     Indication: PROSTATE CANCER
     Dosage: UNK
     Route: 048

REACTIONS (2)
  - Diffuse large B-cell lymphoma [Recovering/Resolving]
  - Second primary malignancy [Recovering/Resolving]
